FAERS Safety Report 6662131-5 (Version None)
Quarter: 2010Q1

REPORT INFORMATION
  Report Type: 
  Country: None (occurrence: None)
  Receive Date: 20100331
  Receipt Date: 20100319
  Transmission Date: 20100710
  Serious: Yes (Hospitalization)
  Sender: FDA-Public Use
  Company Number: KR-PFIZER INC-2010022261

PATIENT
  Age: 71 Year
  Sex: Male
  Weight: 68 kg

DRUGS (10)
  1. PREDNISOLONE [Suspect]
     Indication: PROSTATE CANCER
     Dosage: 5 MG, 2X/DAY
     Route: 048
     Dates: start: 20100111, end: 20100207
  2. BLINDED *NO SUBJECT DRUG [Suspect]
     Indication: PROSTATE CANCER
     Dosage: 37.5 MG, 1X/DAY
     Route: 048
     Dates: start: 20100111, end: 20100207
  3. BLINDED *PLACEBO [Suspect]
     Indication: PROSTATE CANCER
     Dosage: 37.5 MG, 1X/DAY
     Route: 048
     Dates: start: 20100111, end: 20100207
  4. BLINDED SUNITINIB MALATE [Suspect]
     Indication: PROSTATE CANCER
     Dosage: 37.5 MG, 1X/DAY
     Route: 048
     Dates: start: 20100111, end: 20100207
  5. CELECOXIB [Concomitant]
     Indication: PAIN
     Dosage: 200 MG, 2X/DAY
     Route: 048
     Dates: start: 20090717
  6. TAMSULOSIN [Concomitant]
     Indication: PROSTATE CANCER
     Dosage: 0.2 MG, 1X/DAY
     Route: 048
     Dates: start: 20080628
  7. TRIMEBUTINE [Concomitant]
     Indication: DIARRHOEA
     Dosage: 1 TABLET, AS NEEDED
     Route: 048
     Dates: start: 20100118
  8. DOMPERIDONE [Concomitant]
     Indication: DIARRHOEA
     Dosage: 1 TABLET, AS NEEDED
     Route: 048
     Dates: start: 20100118
  9. CAROVERINE [Concomitant]
     Indication: DIARRHOEA
     Dosage: 1 TABLET, AS NEEDED
     Route: 048
     Dates: start: 20100118
  10. MEDILAC-S [Concomitant]
     Indication: DIARRHOEA
     Dosage: 1 TABLET, AS NEEDED
     Dates: start: 20100118

REACTIONS (3)
  - ASTHENIA [None]
  - BONE PAIN [None]
  - DYSURIA [None]
